FAERS Safety Report 7052511-0 (Version None)
Quarter: 2010Q4

REPORT INFORMATION
  Report Type: 
  Country: None (occurrence: None)
  Receive Date: 20101019
  Receipt Date: 20101011
  Transmission Date: 20110411
  Serious: Yes (Other)
  Sender: FDA-Public Use
  Company Number: AU-PFIZER INC-2010128950

PATIENT
  Age: 74 Year
  Sex: Female

DRUGS (1)
  1. REVATIO [Suspect]
     Dosage: 10 MG, 3X/DAY
     Dates: start: 20101001

REACTIONS (4)
  - CARDIAC MURMUR [None]
  - DIZZINESS [None]
  - MALAISE [None]
  - PALPITATIONS [None]
